FAERS Safety Report 23718033 (Version 1)
Quarter: 2024Q2

REPORT INFORMATION
  Report Type: Spontaneous
  Country: EG (occurrence: EG)
  Receive Date: 20240408
  Receipt Date: 20240408
  Transmission Date: 20240715
  Serious: Yes (Other)
  Sender: FDA-Public Use
  Company Number: EG-MYLANLABS-2024M1030153

PATIENT
  Age: 1 Year
  Sex: Male
  Weight: 14 kg

DRUGS (2)
  1. ACYCLOVIR [Suspect]
     Active Substance: ACYCLOVIR
     Indication: Epstein-Barr virus infection
     Dosage: 20 MILLIGRAM/KILOGRAM, Q8H (20MG/KG/DOSE EVERY 8HOURS WITH  INFUSION RATE 2 HOURS FOR 10 DAYS)
     Route: 042
     Dates: start: 20240303
  2. ACYCLOVIR [Suspect]
     Active Substance: ACYCLOVIR
     Dosage: UNK
     Route: 042

REACTIONS (2)
  - Phlebitis [Recovering/Resolving]
  - Thermal burn [Unknown]

NARRATIVE: CASE EVENT DATE: 20240305
